FAERS Safety Report 8250214-8 (Version None)
Quarter: 2012Q2

REPORT INFORMATION
  Report Type: 
  Country: None (occurrence: None)
  Receive Date: 20120402
  Receipt Date: 20120329
  Transmission Date: 20120825
  Serious: Yes (Hospitalization)
  Sender: FDA-Public Use
  Company Number: US-JNJFOC-20120202684

PATIENT
  Sex: Female
  Weight: 78.93 kg

DRUGS (1)
  1. XARELTO [Suspect]
     Indication: ABDOMINOPLASTY
     Route: 065
     Dates: start: 20120111, end: 20120117

REACTIONS (2)
  - OFF LABEL USE [None]
  - MELAENA [None]
